FAERS Safety Report 5131042-9 (Version None)
Quarter: 2006Q4

REPORT INFORMATION
  Report Type: 
  Country: None (occurrence: None)
  Receive Date: 20061019
  Receipt Date: 20061011
  Transmission Date: 20070319
  Serious: Yes (Hospitalization)
  Sender: FDA-Public Use
  Company Number: ES-ROXANE LABORATORIES, INC-2006-BP-11855RO

PATIENT
  Age: 75 Year
  Sex: Male

DRUGS (1)
  1. PREDNISONE TAB [Suspect]
     Indication: POLYNEUROPATHY
     Dosage: 1.5 MG/KG/DAY

REACTIONS (2)
  - PNEUMONIA [None]
  - RHODOCOCCUS INFECTION [None]
